FAERS Safety Report 4937346-4 (Version None)
Quarter: 2006Q1

REPORT INFORMATION
  Report Type: 
  Country: None (occurrence: None)
  Receive Date: 20060309
  Receipt Date: 20060110
  Transmission Date: 20060701
  Serious: Yes (Hospitalization, Other)
  Sender: FDA-Public Use
  Company Number: JP-ABBOTT-06P-087-0321654-00

PATIENT
  Sex: Female
  Weight: 21.5 kg

DRUGS (1)
  1. CEFZON FINE GRANULE [Suspect]
     Indication: DRUG USE FOR UNKNOWN INDICATION
     Route: 048
     Dates: start: 20050501, end: 20051220

REACTIONS (1)
  - HEPATIC FUNCTION ABNORMAL [None]
